FAERS Safety Report 6099664-9 (Version None)
Quarter: 2009Q1

REPORT INFORMATION
  Report Type: 
  Country: None (occurrence: None)
  Receive Date: 20090303
  Receipt Date: 20090226
  Transmission Date: 20090719
  Serious: Yes (Death, Hospitalization)
  Sender: FDA-Public Use
  Company Number: FR-BAYER-200914497GPV

PATIENT
  Age: 64 Year
  Sex: Male

DRUGS (33)
  1. NEXAVAR [Suspect]
     Indication: RENAL CELL CARCINOMA
     Route: 048
     Dates: start: 20070719, end: 20080831
  2. NEXAVAR [Suspect]
     Route: 048
     Dates: start: 20070612
  3. MEDIATENSYL [Concomitant]
     Indication: DRUG USE FOR UNKNOWN INDICATION
     Dosage: TOTAL DAILY DOSE: 120 MG
     Route: 065
     Dates: start: 20070628, end: 20070703
  4. TRIATEC [Concomitant]
     Indication: DRUG USE FOR UNKNOWN INDICATION
     Route: 065
     Dates: start: 20070702, end: 20070704
  5. AMLOR [Concomitant]
     Indication: DRUG USE FOR UNKNOWN INDICATION
     Dosage: TOTAL DAILY DOSE: 10 MG
     Route: 065
     Dates: start: 20070613, end: 20070616
  6. AMLOR [Concomitant]
     Route: 065
     Dates: start: 20070629, end: 20070704
  7. SECTRAL [Concomitant]
     Indication: DRUG USE FOR UNKNOWN INDICATION
     Route: 065
     Dates: start: 20070629, end: 20070704
  8. BACTRIM [Concomitant]
     Indication: DRUG USE FOR UNKNOWN INDICATION
     Route: 065
     Dates: start: 20070823, end: 20070901
  9. RIFADIN [Concomitant]
     Indication: DRUG USE FOR UNKNOWN INDICATION
     Route: 065
     Dates: start: 20070823, end: 20070901
  10. SPECIAFOLDINE [Concomitant]
     Indication: DRUG USE FOR UNKNOWN INDICATION
     Route: 065
     Dates: start: 20070823, end: 20070901
  11. RAMIPRIL [Concomitant]
     Indication: DRUG USE FOR UNKNOWN INDICATION
     Route: 065
     Dates: start: 20070603, end: 20070604
  12. RAMIPRIL [Concomitant]
     Route: 065
     Dates: start: 20070608, end: 20070616
  13. RAMIPRIL [Concomitant]
     Route: 065
     Dates: start: 20070629, end: 20070701
  14. FLUDROCORTISONE [Concomitant]
     Indication: DRUG USE FOR UNKNOWN INDICATION
     Route: 065
     Dates: start: 20070603, end: 20070616
  15. FLUDROCORTISONE [Concomitant]
     Route: 065
     Dates: start: 20070629, end: 20070703
  16. ACEBUTOLOL [Concomitant]
     Indication: DRUG USE FOR UNKNOWN INDICATION
     Route: 065
     Dates: start: 20070603, end: 20070612
  17. LOXEN [Concomitant]
     Indication: DRUG USE FOR UNKNOWN INDICATION
     Route: 065
     Dates: start: 20070603, end: 20070612
  18. DIFFU K [Concomitant]
     Indication: DRUG USE FOR UNKNOWN INDICATION
     Route: 065
     Dates: start: 20070608, end: 20070716
  19. DIFFU K [Concomitant]
     Route: 065
     Dates: start: 20070628, end: 20070704
  20. FORLAX [Concomitant]
     Indication: DRUG USE FOR UNKNOWN INDICATION
     Route: 065
     Dates: start: 20070610, end: 20070610
  21. VITAMINE B1 B6 [Concomitant]
     Indication: DRUG USE FOR UNKNOWN INDICATION
     Route: 065
     Dates: start: 20070611, end: 20070615
  22. ZYVOXID [Concomitant]
     Indication: DRUG USE FOR UNKNOWN INDICATION
     Dosage: AS USED: 600 MG
     Route: 065
     Dates: start: 20070612, end: 20070614
  23. HYDROCORTISONE [Concomitant]
     Indication: DRUG USE FOR UNKNOWN INDICATION
     Route: 065
     Dates: start: 20070602, end: 20070615
  24. HYDROCORTISONE [Concomitant]
     Route: 065
     Dates: start: 20070629, end: 20070704
  25. FORTUM [Concomitant]
     Indication: DRUG USE FOR UNKNOWN INDICATION
     Route: 065
     Dates: start: 20070602, end: 20070615
  26. AMIKLIN [Concomitant]
     Indication: DRUG USE FOR UNKNOWN INDICATION
     Route: 065
     Dates: start: 20070101, end: 20070602
  27. VANCOMYCINE [Concomitant]
     Indication: DRUG USE FOR UNKNOWN INDICATION
     Route: 065
     Dates: start: 20070606, end: 20070612
  28. ATARAX [Concomitant]
     Indication: DRUG USE FOR UNKNOWN INDICATION
     Route: 065
     Dates: start: 20070612, end: 20070612
  29. SOLU-MEDROL [Concomitant]
     Indication: DRUG USE FOR UNKNOWN INDICATION
     Route: 065
     Dates: start: 20070612, end: 20070612
  30. LASIX [Concomitant]
     Indication: DRUG USE FOR UNKNOWN INDICATION
     Dosage: TOTAL DAILY DOSE: 120 MG
     Route: 065
     Dates: start: 20070608, end: 20070615
  31. LASIX [Concomitant]
     Route: 065
     Dates: start: 20070628, end: 20070704
  32. EFFERALGAN [Concomitant]
     Indication: DRUG USE FOR UNKNOWN INDICATION
     Route: 065
     Dates: start: 20070628, end: 20070628
  33. DAFALGAN [Concomitant]
     Indication: DRUG USE FOR UNKNOWN INDICATION
     Route: 065
     Dates: start: 20070629, end: 20070701

REACTIONS (4)
  - DRUG INTOLERANCE [None]
  - GENERAL PHYSICAL HEALTH DETERIORATION [None]
  - MUCOSAL INFLAMMATION [None]
  - RASH GENERALISED [None]
